FAERS Safety Report 13026255 (Version 3)
Quarter: 2017Q2

REPORT INFORMATION
  Report Type: Report from Study
  Country: GB (occurrence: GB)
  Receive Date: 20161214
  Receipt Date: 20170410
  Transmission Date: 20170830
  Serious: Yes (Death, Other)
  Sender: FDA-Public Use
  Company Number: PHFR2016GB008978

PATIENT
  Sex: Male

DRUGS (1)
  1. SANDOSTATIN LAR DEPOT [Suspect]
     Active Substance: OCTREOTIDE ACETATE
     Indication: PRODUCT USED FOR UNKNOWN INDICATION
     Dosage: 30 MG, UNK
     Route: 030
     Dates: start: 20161010

REACTIONS (7)
  - Death [Fatal]
  - Hyperhidrosis [Unknown]
  - Hypokinesia [Unknown]
  - General physical health deterioration [Unknown]
  - Urinary retention [Unknown]
  - Breakthrough pain [Unknown]
  - Diarrhoea [Unknown]
